FAERS Safety Report 20608371 (Version 1)
Quarter: 2022Q1

REPORT INFORMATION
  Report Type: Spontaneous
  Country: CA (occurrence: CA)
  Receive Date: 20220317
  Receipt Date: 20220317
  Transmission Date: 20220423
  Serious: Yes (Other)
  Sender: FDA-Public Use
  Company Number: CA-PFIZER INC-202200383146

PATIENT
  Age: 63 Year
  Sex: Male

DRUGS (10)
  1. SOMAVERT [Suspect]
     Active Substance: PEGVISOMANT
     Indication: Acromegaly
     Dosage: 10 MG, 1X/DAY
     Route: 058
     Dates: start: 20161216, end: 2017
  2. SOMAVERT [Suspect]
     Active Substance: PEGVISOMANT
     Dosage: 15 MG, 1X/DAY
     Route: 058
     Dates: start: 2017, end: 2017
  3. SOMAVERT [Suspect]
     Active Substance: PEGVISOMANT
     Dosage: 20 MG, 1X/DAY, DISCONTINUED
     Route: 058
     Dates: start: 2017
  4. SOMAVERT [Suspect]
     Active Substance: PEGVISOMANT
     Dosage: 30 MG, 1X/DAY
     Route: 058
  5. HYDROCORTISONE ACETATE [Concomitant]
     Active Substance: HYDROCORTISONE ACETATE
     Dosage: 10 MG, 2X/DAY
  6. SYNTHROID [Concomitant]
     Active Substance: LEVOTHYROXINE SODIUM
     Dosage: 275 MCG, DAILY
  7. GLYBURIDE [Concomitant]
     Active Substance: GLYBURIDE
     Dosage: 5 MG, 2X/DAY
  8. METFORMIN [Concomitant]
     Active Substance: METFORMIN HYDROCHLORIDE
     Dosage: 1 G, 2X/DAY
  9. JARDIANCE [Concomitant]
     Active Substance: EMPAGLIFLOZIN
     Dosage: 10 MG, 1X/DAY,(DIABETES)
  10. ANDROGEL [Concomitant]
     Active Substance: TESTOSTERONE
     Dosage: 2.5 G, GEL SACHET ONCE PER DAY

REACTIONS (8)
  - Depressed mood [Unknown]
  - Loss of personal independence in daily activities [Unknown]
  - Muscular weakness [Unknown]
  - Snoring [Unknown]
  - Fatigue [Unknown]
  - Arthralgia [Unknown]
  - Loss of libido [Unknown]
  - Asthenia [Unknown]
